FAERS Safety Report 6768698-0 (Version None)
Quarter: 2010Q2

REPORT INFORMATION
  Report Type: 
  Country: None (occurrence: None)
  Receive Date: 20100614
  Receipt Date: 20100602
  Transmission Date: 20101027
  Serious: Yes (Other)
  Sender: FDA-Public Use
  Company Number: KR-ELI_LILLY_AND_COMPANY-KR201003004249

PATIENT
  Age: 61 Year
  Sex: Female

DRUGS (4)
  1. PEMETREXED [Suspect]
     Indication: LUNG ADENOCARCINOMA
  2. FOLIC ACID [Concomitant]
     Dosage: 1 MG, DAILY (1/D)
  3. VITAMIN B-12 [Concomitant]
     Dosage: UNK, AS NEEDED (PER THREE CYCLES)
     Route: 030
  4. DEXAMETHASONE [Concomitant]
     Dosage: UNK, AS NEEDED (PER CYCLE)
     Route: 065

REACTIONS (3)
  - DYSPNOEA [None]
  - LUNG INFILTRATION [None]
  - TRAUMATIC LUNG INJURY [None]
